FAERS Safety Report 4611842-1 (Version None)
Quarter: 2005Q2

REPORT INFORMATION
  Report Type: 
  Country: None (occurrence: None)
  Receive Date: 20050308
  Receipt Date: 20050110
  Transmission Date: 20051028
  Serious: Yes (Other)
  Sender: FDA-Public Use
  Company Number: 2005UW00437

PATIENT
  Age: 77 Year
  Sex: Male
  Weight: 81.646 kg

DRUGS (5)
  1. CRESTOR [Suspect]
     Indication: BLOOD CHOLESTEROL INCREASED
     Dosage: 10 MG PO
     Route: 048
  2. LIPITOR [Suspect]
     Dosage: 20 MG
  3. CARDIZEM [Concomitant]
  4. ASPIRIN [Concomitant]
  5. VITAMINS [Concomitant]

REACTIONS (3)
  - MEDICATION ERROR [None]
  - MUSCLE SPASMS [None]
  - TREMOR [None]
